FAERS Safety Report 13153081 (Version 2)
Quarter: 2017Q1

REPORT INFORMATION
  Report Type: Spontaneous
  Country: US (occurrence: US)
  Receive Date: 20170126
  Receipt Date: 20170228
  Transmission Date: 20170428
  Serious: No
  Sender: FDA-Public Use
  Company Number: US-ASTRAZENECA-2017SE07394

PATIENT
  Age: 682 Month
  Sex: Female

DRUGS (2)
  1. SYMBICORT [Suspect]
     Active Substance: BUDESONIDE\FORMOTEROL FUMARATE DIHYDRATE
     Dosage: DOSE: 80 MCG / 4.5 MCG, 2 PUFFS, FREQUENCY:  TWO TIMES A DAY
     Route: 055
  2. SYMBICORT [Suspect]
     Active Substance: BUDESONIDE\FORMOTEROL FUMARATE DIHYDRATE
     Dosage: DOSE: 80 MCG / 4.5 MCG, 2 PUFFS, FREQUENCY:  TWO TIMES A DAY
     Route: 055
     Dates: start: 20170110

REACTIONS (3)
  - Product packaging quantity issue [Unknown]
  - Device failure [Unknown]
  - Malaise [Unknown]

NARRATIVE: CASE EVENT DATE: 201701
